FAERS Safety Report 4634449-9 (Version None)
Quarter: 2005Q2

REPORT INFORMATION
  Report Type: 
  Country: None (occurrence: None)
  Receive Date: 20050412
  Receipt Date: 20050331
  Transmission Date: 20051028
  Serious: Yes (Death)
  Sender: FDA-Public Use
  Company Number: BRO-008485

PATIENT
  Age: 72 Year
  Sex: Male

DRUGS (2)
  1. IOPAMIDOL-300 [Suspect]
     Indication: BLADDER CANCER
     Route: 042
     Dates: start: 20050323, end: 20050323
  2. IOPAMIDOL-300 [Suspect]
     Indication: UROGRAPHY
     Route: 042
     Dates: start: 20050323, end: 20050323

REACTIONS (2)
  - CARDIO-RESPIRATORY ARREST [None]
  - FLUSHING [None]
